FAERS Safety Report 19355442 (Version 1)
Quarter: 2021Q2

REPORT INFORMATION
  Report Type: Report from Study
  Country: GB (occurrence: GB)
  Receive Date: 20210531
  Receipt Date: 20210531
  Transmission Date: 20210717
  Serious: Yes (Other)
  Sender: FDA-Public Use
  Company Number: GB-ALEXION-A202010872

PATIENT
  Age: 56 Year
  Sex: Female

DRUGS (2)
  1. STRENSIQ [Suspect]
     Active Substance: ASFOTASE ALFA
     Indication: HYPOPHOSPHATASIA
     Dosage: 70 MG, QD/WEEK
     Route: 058
     Dates: start: 20200722, end: 20200723
  2. STRENSIQ [Suspect]
     Active Substance: ASFOTASE ALFA
     Dosage: 1 MG/KG, SIX TIMES/WEEK
     Route: 058
     Dates: start: 20200722, end: 20200723

REACTIONS (6)
  - Pharyngeal hypoaesthesia [Not Recovered/Not Resolved]
  - Dysgeusia [Unknown]
  - Oral dysaesthesia [Recovered/Resolved]
  - Dry throat [Unknown]
  - Anxiety [Unknown]
  - Injection related reaction [Unknown]

NARRATIVE: CASE EVENT DATE: 20200722
